FAERS Safety Report 6258633-6 (Version None)
Quarter: 2009Q3

REPORT INFORMATION
  Report Type: 
  Country: None (occurrence: None)
  Receive Date: 20090707
  Receipt Date: 20090702
  Transmission Date: 20100115
  Serious: Yes (Hospitalization, Other)
  Sender: FDA-Public Use
  Company Number: US-ABBOTT-09P-163-0583148-00

PATIENT
  Sex: Female
  Weight: 78.996 kg

DRUGS (2)
  1. HUMIRA [Suspect]
     Indication: CROHN'S DISEASE
     Route: 058
     Dates: start: 20080701, end: 20090522
  2. HUMIRA [Suspect]
     Dates: start: 20090604

REACTIONS (4)
  - ABORTION SPONTANEOUS [None]
  - CROHN'S DISEASE [None]
  - UPPER RESPIRATORY TRACT INFECTION [None]
  - WHEEZING [None]
